FAERS Safety Report 6405442-0 (Version None)
Quarter: 2009Q4

REPORT INFORMATION
  Report Type: 
  Country: None (occurrence: None)
  Receive Date: 20091019
  Receipt Date: 20091008
  Transmission Date: 20100525
  Serious: No
  Sender: FDA-Public Use
  Company Number: US-B.I. PHARMACEUTICALS,INC./RIDGEFIELD-2009-BP-11855PF

PATIENT
  Sex: Female

DRUGS (2)
  1. SPIRIVA [Suspect]
     Dosage: 18 MCG
  2. LYRICA [Concomitant]
     Indication: PAIN MANAGEMENT
     Dosage: 600 MG

REACTIONS (2)
  - INTERCOSTAL NEURALGIA [None]
  - POST-THORACOTOMY PAIN SYNDROME [None]
